FAERS Safety Report 8259316-3 (Version None)
Quarter: 2012Q2

REPORT INFORMATION
  Report Type: 
  Country: None (occurrence: None)
  Receive Date: 20120404
  Receipt Date: 20120327
  Transmission Date: 20120825
  Serious: Yes (Other)
  Sender: FDA-Public Use
  Company Number: US-BAYER-2011-096687

PATIENT
  Age: 33 Year
  Sex: Female
  Weight: 65.76 kg

DRUGS (6)
  1. MIGRAINE MEDICINE [Concomitant]
     Dosage: UNK
     Dates: start: 19920101
  2. IBUPROFEN [Concomitant]
     Indication: PAIN
  3. IBUPROFEN [Concomitant]
     Indication: MIGRAINE
     Dosage: UNK
     Dates: start: 19920101
  4. IBUPROFEN [Concomitant]
     Indication: HEADACHE
  5. NSAID'S [Concomitant]
     Dosage: UNK
     Dates: start: 19950101
  6. YAZ [Suspect]
     Indication: CONTRACEPTION
     Dosage: UNK
     Route: 048
     Dates: start: 20070101, end: 20100105

REACTIONS (7)
  - ANXIETY [None]
  - OEDEMA PERIPHERAL [None]
  - DEEP VEIN THROMBOSIS [None]
  - GENERAL PHYSICAL HEALTH DETERIORATION [None]
  - EMOTIONAL DISTRESS [None]
  - PAIN IN EXTREMITY [None]
  - INJURY [None]
